FAERS Safety Report 7286815-3 (Version None)
Quarter: 2011Q1

REPORT INFORMATION
  Report Type: 
  Country: None (occurrence: None)
  Receive Date: 20110210
  Receipt Date: 20110128
  Transmission Date: 20110831
  Serious: Yes (Other)
  Sender: FDA-Public Use
  Company Number: US-BAYER-200922920NA

PATIENT
  Sex: Female

DRUGS (2)
  1. MAGNEVIST [Suspect]
     Indication: NUCLEAR MAGNETIC RESONANCE IMAGING
     Dosage: 15 ML, ONCE
     Route: 042
     Dates: start: 20090202, end: 20090202
  2. MAGNEVIST [Suspect]
     Indication: PAIN IN EXTREMITY

REACTIONS (22)
  - SYNCOPE [None]
  - ASTHENIA [None]
  - PYREXIA [None]
  - OEDEMA PERIPHERAL [None]
  - MUSCULAR WEAKNESS [None]
  - CARDIAC DISORDER [None]
  - ATRIAL FIBRILLATION [None]
  - DYSURIA [None]
  - ARTHRALGIA [None]
  - RENAL CYST [None]
  - INCONTINENCE [None]
  - GAIT DISTURBANCE [None]
  - DIZZINESS [None]
  - LETHARGY [None]
  - VOMITING [None]
  - DRUG LEVEL CHANGED [None]
  - DYSSTASIA [None]
  - TREMOR [None]
  - DIARRHOEA [None]
  - HEART RATE IRREGULAR [None]
  - CONFUSIONAL STATE [None]
  - BONE PAIN [None]
